FAERS Safety Report 4776306-3 (Version None)
Quarter: 2005Q3

REPORT INFORMATION
  Report Type: 
  Country: None (occurrence: None)
  Receive Date: 20050921
  Receipt Date: 20050917
  Transmission Date: 20060218
  Serious: Yes (Hospitalization)
  Sender: FDA-Public Use
  Company Number: CHWYE990119SEP05

PATIENT
  Age: 85 Year
  Sex: Female

DRUGS (3)
  1. EFFEXOR [Suspect]
     Indication: DEPRESSION
     Dosage: 75 MG 1X PER 1 DAY, ORAL
     Route: 048
  2. ANALGESICS (ANALGESICS) [Concomitant]
  3. DIHYDROCODEINE (DIHYDROCODEINE) [Concomitant]

REACTIONS (1)
  - HOSPITALISATION [None]
